FAERS Safety Report 9166713 (Version 1)
Quarter: 2013Q1

REPORT INFORMATION
  Report Type: Spontaneous
  Country: ES (occurrence: ES)
  Receive Date: 20130316
  Receipt Date: 20130316
  Transmission Date: 20140127
  Serious: Yes (Other)
  Sender: FDA-Public Use
  Company Number: ES-ACCORD-016799

PATIENT
  Age: 38 Year
  Sex: Female

DRUGS (3)
  1. TACROLIMUS [Suspect]
     Indication: IMMUNOSUPPRESSION
  2. AZATHIOPRINE [Suspect]
     Indication: IMMUNOSUPPRESSION
  3. MYCOPHENOLATE MOFETIL [Suspect]
     Indication: IMMUNOSUPPRESSION

REACTIONS (8)
  - Pulmonary oedema [Unknown]
  - Pregnancy [Unknown]
  - Diarrhoea [Unknown]
  - Renal failure [Unknown]
  - Off label use [Unknown]
  - Drug intolerance [Unknown]
  - Hypertension [Unknown]
  - Hypertensive crisis [Unknown]
